FAERS Safety Report 25336315 (Version 1)
Quarter: 2025Q2

REPORT INFORMATION
  Report Type: Spontaneous
  Country: US (occurrence: None)
  Receive Date: 20250519
  Receipt Date: 20250519
  Transmission Date: 20250716
  Serious: Yes (Death)
  Sender: FDA-CTU
  Company Number: None

PATIENT
  Age: 70 Year
  Sex: Female

DRUGS (6)
  1. AMBRISENTAN [Suspect]
     Active Substance: AMBRISENTAN
     Indication: Pulmonary hypertension
     Dosage: FREQUENCY : DAILY;?
     Route: 048
     Dates: start: 20211228, end: 20250417
  2. SILDENAFIL [Concomitant]
     Active Substance: SILDENAFIL
  3. METOPROLOL [Concomitant]
     Active Substance: METOPROLOL
  4. LEVETIRACETAM [Concomitant]
     Active Substance: LEVETIRACETAM
  5. FUROSEMIDE [Concomitant]
     Active Substance: FUROSEMIDE
  6. vitamn D3 [Concomitant]

REACTIONS (1)
  - Death [None]

NARRATIVE: CASE EVENT DATE: 20250417
